FAERS Safety Report 9613554 (Version 2)
Quarter: 2014Q1

REPORT INFORMATION
  Report Type: Spontaneous
  Country: GB (occurrence: None)
  Receive Date: 20131008
  Receipt Date: 20140131
  Transmission Date: 20141002
  Serious: Yes (Hospitalization, Other)
  Sender: FDA-Public Use
  Company Number: AUR-APL-2013-08192

PATIENT
  Age: 32 Year
  Sex: Male
  Weight: 87.54 kg

DRUGS (7)
  1. FLUOXETINE [Suspect]
     Indication: PRODUCT USED FOR UNKNOWN INDICATION
     Dates: start: 20130827, end: 20130919
  2. ZOPICLONE [Suspect]
     Dates: start: 20130902
  3. DIAZEPAM (DIAZEPAM) [Concomitant]
  4. MIRTAZAPINE (MIRTAZAPINE) [Concomitant]
  5. PERICYAZINE (PERICIAZINE) [Concomitant]
  6. PREDNISOLONE (PREDNISOLONE) [Concomitant]
  7. ZOLPIDEM (ZOLPIDEM) [Concomitant]

REACTIONS (3)
  - Angioedema [None]
  - Eye swelling [None]
  - Urticaria [None]
